FAERS Safety Report 6670964-4 (Version None)
Quarter: 2010Q2

REPORT INFORMATION
  Report Type: 
  Country: None (occurrence: None)
  Receive Date: 20100407
  Receipt Date: 20100330
  Transmission Date: 20101027
  Serious: Yes (Hospitalization)
  Sender: FDA-Public Use
  Company Number: GB-JNJCH-2010000196

PATIENT
  Age: 18 Month
  Sex: Male

DRUGS (2)
  1. CETIRIZINE HYDROCHLORIDE [Suspect]
     Indication: RHINITIS ALLERGIC
     Dosage: TEXT:180MG, 18ML, CETIRIZINE SOLUTION, 3.5MG,
     Route: 048
  2. CETIRIZINE HYDROCHLORIDE [Suspect]
     Dosage: TEXT:RESTARTED AFTER 3 DAY WASHOUT

REACTIONS (4)
  - AGITATION [None]
  - IRRITABILITY [None]
  - OVERDOSE [None]
  - VOMITING [None]
